FAERS Safety Report 7180452-7 (Version None)
Quarter: 2010Q4

REPORT INFORMATION
  Report Type: 
  Country: None (occurrence: None)
  Receive Date: 20101221
  Receipt Date: 20101213
  Transmission Date: 20110411
  Serious: Yes (Hospitalization, Other)
  Sender: FDA-Public Use
  Company Number: CHPA2008US08792

PATIENT
  Age: 77 Year
  Sex: Male
  Weight: 104.31 kg

DRUGS (3)
  1. MAALOX MS TOTAL STOMACH RELIEF (NCH) [Suspect]
     Indication: FLATULENCE
     Dosage: 6 TSP, QD
     Route: 048
     Dates: start: 20080523, end: 20080526
  2. MAALOX MS TOTAL STOMACH RELIEF (NCH) [Suspect]
     Indication: DYSPEPSIA
     Dosage: UNK
     Route: 048
  3. ANTIHYPERTENSIVE DRUGS [Concomitant]
     Indication: HYPERTENSION
     Dosage: UNK

REACTIONS (5)
  - ATRIAL FIBRILLATION [None]
  - CARDIAC FAILURE CONGESTIVE [None]
  - CONSTIPATION [None]
  - FOAMING AT MOUTH [None]
  - MYOCARDIAL INFARCTION [None]
